FAERS Safety Report 14469100 (Version 1)
Quarter: 2018Q1

REPORT INFORMATION
  Report Type: Spontaneous
  Country: CN (occurrence: CN)
  Receive Date: 20180131
  Receipt Date: 20180131
  Transmission Date: 20180509
  Serious: Yes (Other)
  Sender: FDA-Public Use
  Company Number: PHHY2018CN008889

PATIENT
  Age: 30 Year
  Sex: Male

DRUGS (1)
  1. TOBRADEX [Suspect]
     Active Substance: DEXAMETHASONE\TOBRAMYCIN
     Indication: GLAUCOMATOCYCLITIC CRISES
     Dosage: UNK
     Route: 061

REACTIONS (3)
  - Extraocular muscle paresis [Unknown]
  - Eyelid ptosis [Unknown]
  - Treatment failure [Unknown]
